FAERS Safety Report 5148308-9 (Version None)
Quarter: 2006Q4

REPORT INFORMATION
  Report Type: 
  Country: None (occurrence: None)
  Receive Date: 20061106
  Receipt Date: 20061023
  Transmission Date: 20070319
  Serious: Yes (Other)
  Sender: FDA-Public Use
  Company Number: 2006132528

PATIENT
  Sex: Male

DRUGS (1)
  1. ZYRTEC [Suspect]
     Dosage: 10 MG  + 5 ML  1 D

REACTIONS (4)
  - DIZZINESS [None]
  - HALLUCINATION [None]
  - MYALGIA [None]
  - VISUAL DISTURBANCE [None]
